FAERS Safety Report 16609877 (Version 3)
Quarter: 2019Q3

REPORT INFORMATION
  Report Type: Spontaneous
  Country: US (occurrence: US)
  Receive Date: 20190722
  Receipt Date: 20190923
  Transmission Date: 20191004
  Serious: Yes (Hospitalization)
  Sender: FDA-Public Use
  Company Number: US-ACTELION-A-NJ2019-193199

PATIENT
  Age: 68 Year
  Sex: Female

DRUGS (2)
  1. OPSUMIT [Suspect]
     Active Substance: MACITENTAN
     Indication: PULMONARY ARTERIAL HYPERTENSION
     Dosage: 10 MG, QD
     Route: 048
     Dates: start: 20190402
  2. OPSUMIT [Suspect]
     Active Substance: MACITENTAN
     Dosage: 10 MG,QD
     Route: 048
     Dates: start: 2019, end: 2019

REACTIONS (4)
  - Pulmonary oedema [Unknown]
  - Fluid retention [Recovered/Resolved]
  - Dyspnoea exertional [Not Recovered/Not Resolved]
  - Dyspnoea [Unknown]

NARRATIVE: CASE EVENT DATE: 201906
